FAERS Safety Report 6601984-3 (Version None)
Quarter: 2010Q1

REPORT INFORMATION
  Report Type: 
  Country: None (occurrence: None)
  Receive Date: 20100218
  Receipt Date: 20100203
  Transmission Date: 20100710
  Serious: Yes (Hospitalization)
  Sender: FDA-Public Use
  Company Number: 2010000444

PATIENT
  Age: 53 Year
  Sex: Female

DRUGS (13)
  1. ERLOTINIB (ERLOTINIB) (TABLET) (ERLOTINIB) [Suspect]
     Indication: LUNG NEOPLASM MALIGNANT
     Dosage: (50 MG),ORAL
     Route: 048
     Dates: start: 20080723
  2. BEVACIZUMAB [Suspect]
     Indication: LUNG NEOPLASM MALIGNANT
     Dosage: (15 MG/KG,Q3W),INTRAVENOUS
     Route: 042
     Dates: start: 20080723, end: 20091224
  3. 4 LIFE TRANSFER FACTOR (TRANSFER FACTOR) [Concomitant]
  4. THERA PLUS VITAMINS (MULTIVITAMINS WITH MINERALS) [Concomitant]
  5. LOVENOX [Concomitant]
  6. MINOCYCLINE HCL [Concomitant]
  7. FENTANYL-100 [Concomitant]
  8. ZOFRAN [Concomitant]
  9. PROMETHAZINE HYDROCHLORIDE (PROMETHAZINE HYDROCHLORIDE) [Concomitant]
  10. LORTAB (VICODIN) [Concomitant]
  11. LISINOPRIL [Concomitant]
  12. LEVAQUIN [Concomitant]
  13. CIPRO [Concomitant]

REACTIONS (11)
  - BRONCHITIS VIRAL [None]
  - CANDIDA SEPSIS [None]
  - DERMATITIS ACNEIFORM [None]
  - DEVICE RELATED INFECTION [None]
  - GASTROOESOPHAGEAL REFLUX DISEASE [None]
  - LEFT VENTRICULAR DYSFUNCTION [None]
  - PERICARDIAL EFFUSION [None]
  - PLATELET COUNT DECREASED [None]
  - PULMONARY HYPERTENSION [None]
  - TRICUSPID VALVE INCOMPETENCE [None]
  - WHITE BLOOD CELL COUNT DECREASED [None]
